FAERS Safety Report 7033062-6 (Version None)
Quarter: 2010Q4

REPORT INFORMATION
  Report Type: 
  Country: None (occurrence: None)
  Receive Date: 20101005
  Receipt Date: 20100921
  Transmission Date: 20110411
  Serious: Yes (Hospitalization, Other)
  Sender: FDA-Public Use
  Company Number: 2010AP002058

PATIENT
  Age: 57 Year
  Sex: Female

DRUGS (5)
  1. CLARITHROMYCIN [Suspect]
     Indication: PNEUMONIA
  2. TACROLIMUS [Suspect]
     Indication: OBLITERATIVE BRONCHIOLITIS
     Dosage: 3 MG; BID; 1 DF
  3. AMOXICILLIN [Concomitant]
  4. AZATHIOPRINE [Concomitant]
  5. PREDNISOLONE [Concomitant]

REACTIONS (9)
  - ACIDOSIS [None]
  - BLOOD POTASSIUM INCREASED [None]
  - CHEST PAIN [None]
  - DRUG INTERACTION [None]
  - HAEMOLYTIC URAEMIC SYNDROME [None]
  - LUNG CONSOLIDATION [None]
  - PLATELET COUNT DECREASED [None]
  - PNEUMONIA [None]
  - PULMONARY EMBOLISM [None]
